FAERS Safety Report 9902064 (Version 2)
Quarter: 2014Q3

REPORT INFORMATION
  Report Type: Spontaneous
  Country: US (occurrence: US)
  Receive Date: 20140217
  Receipt Date: 20140804
  Transmission Date: 20150326
  Serious: Yes (Hospitalization, Other)
  Sender: FDA-Public Use
  Company Number: US-009507513-1402USA007225

PATIENT
  Sex: Female

DRUGS (1)
  1. NUVARING [Suspect]
     Active Substance: ETHINYL ESTRADIOL\ETONOGESTREL
     Indication: CONTRACEPTION
     Dosage: UNK
     Route: 067
     Dates: start: 20130207, end: 20131111

REACTIONS (15)
  - Pulmonary embolism [Unknown]
  - Appendicolith [Unknown]
  - Muscle strain [Unknown]
  - Fall [Unknown]
  - Tricuspid valve incompetence [Unknown]
  - Drug ineffective [Unknown]
  - Mitral valve incompetence [Unknown]
  - Pulmonary valve incompetence [Unknown]
  - Haemoptysis [Unknown]
  - Haemorrhagic anaemia [Unknown]
  - Deep vein thrombosis [Unknown]
  - Laryngospasm [Unknown]
  - Constipation [Recovered/Resolved]
  - Bronchitis [Unknown]
  - Pneumonia haemophilus [Unknown]

NARRATIVE: CASE EVENT DATE: 201311
